FAERS Safety Report 18672926 (Version 2)
Quarter: 2021Q4

REPORT INFORMATION
  Report Type: Report from Study
  Country: US (occurrence: US)
  Receive Date: 20201229
  Receipt Date: 20211011
  Transmission Date: 20220303
  Serious: No
  Sender: FDA-Public Use
  Company Number: US-SA-2020SA367247

PATIENT
  Age: 60 Year
  Sex: Male
  Weight: 76.2 kg

DRUGS (3)
  1. DUPILUMAB [Suspect]
     Active Substance: DUPILUMAB
     Indication: Dermatitis atopic
     Dosage: 600 MG, 1X
     Route: 058
     Dates: start: 20200608, end: 20200608
  2. DUPILUMAB [Suspect]
     Active Substance: DUPILUMAB
     Dosage: 300 MG, QOW
     Route: 058
     Dates: start: 202006, end: 202009
  3. DUPILUMAB [Suspect]
     Active Substance: DUPILUMAB
     Dosage: 300 MG, QOW (DISCONTINUED SINCE AROUND JUN2021 OR JUL2021)
     Route: 058
     Dates: end: 2021

REACTIONS (4)
  - Rebound atopic dermatitis [Unknown]
  - Pruritus [Unknown]
  - Urticaria [Unknown]
  - Rebound eczema [Not Recovered/Not Resolved]

NARRATIVE: CASE EVENT DATE: 20201201
